FAERS Safety Report 10707018 (Version 1)
Quarter: 2015Q1

REPORT INFORMATION
  Report Type: Spontaneous
  Country: US (occurrence: None)
  Receive Date: 20150112
  Receipt Date: 20150112
  Transmission Date: 20150721
  Serious: No
  Sender: FDA-Public Use
  Company Number: None

PATIENT
  Sex: Female
  Weight: 88 kg

DRUGS (1)
  1. ORTHO TRI CYCLEN [Suspect]
     Active Substance: ETHINYL ESTRADIOL\NORGESTIMATE
     Indication: ORAL CONTRACEPTION
     Dosage: 28 DAY PACK
     Route: 048

REACTIONS (6)
  - Product substitution issue [None]
  - Menstrual disorder [None]
  - Phonophobia [None]
  - Headache [None]
  - Visual impairment [None]
  - Photophobia [None]
